FAERS Safety Report 11231810 (Version 5)
Quarter: 2015Q4

REPORT INFORMATION
  Report Type: Spontaneous
  Country: US (occurrence: US)
  Receive Date: 20150701
  Receipt Date: 20151009
  Transmission Date: 20160304
  Serious: No
  Sender: FDA-Public Use
  Company Number: US-TEVA-574412ACC

PATIENT
  Age: 31 Year
  Sex: Female
  Weight: 65.83 kg

DRUGS (1)
  1. PARAGARD T 380A [Suspect]
     Active Substance: COPPER
     Indication: CONTRACEPTION
     Route: 015
     Dates: start: 20150323

REACTIONS (15)
  - Menorrhagia [Recovered/Resolved]
  - Impaired driving ability [Unknown]
  - Emotional distress [Unknown]
  - Metrorrhagia [Recovered/Resolved]
  - Abdominal pain [Recovered/Resolved]
  - Nausea [Unknown]
  - Device expulsion [Unknown]
  - Hypokinesia [Unknown]
  - Pain [Unknown]
  - Muscle spasms [Unknown]
  - Dysmenorrhoea [Not Recovered/Not Resolved]
  - Alopecia [Unknown]
  - Vaginal haemorrhage [Recovered/Resolved]
  - Bedridden [Unknown]
  - Menstruation irregular [Recovered/Resolved]

NARRATIVE: CASE EVENT DATE: 20150323
